FAERS Safety Report 6558205-X (Version None)
Quarter: 2010Q1

REPORT INFORMATION
  Report Type: 
  Country: None (occurrence: None)
  Receive Date: 20100126
  Receipt Date: 20100113
  Transmission Date: 20100710
  Serious: Yes (Death)
  Sender: FDA-Public Use
  Company Number: 2010AC000062

PATIENT
  Age: 63 Year
  Sex: Female

DRUGS (4)
  1. DIGOXIN [Suspect]
     Dosage: PO
     Route: 048
     Dates: start: 20070622
  2. COREG [Concomitant]
  3. MICARDIS [Concomitant]
  4. LORATADINE [Concomitant]

REACTIONS (3)
  - ECONOMIC PROBLEM [None]
  - MULTIPLE INJURIES [None]
  - SURGERY [None]
